FAERS Safety Report 14858606 (Version 1)
Quarter: 2018Q2

REPORT INFORMATION
  Report Type: Spontaneous
  Country: FR (occurrence: FR)
  Receive Date: 20180508
  Receipt Date: 20180508
  Transmission Date: 20180711
  Serious: Yes (Other)
  Sender: FDA-Public Use
  Company Number: FR-MERCK KGAA-2047370

PATIENT
  Age: 74 Year
  Sex: Female

DRUGS (8)
  1. CARBOSYMAG [Concomitant]
  2. TAREG [Concomitant]
     Active Substance: VALSARTAN
  3. KARDEGIC [Concomitant]
     Active Substance: ASPIRIN DL-LYSINE
  4. INEXIUM [Concomitant]
     Active Substance: ESOMEPRAZOLE
  5. GALVUS [Concomitant]
     Active Substance: VILDAGLIPTIN
  6. NOVOTHYROX [Suspect]
     Active Substance: LEVOTHYROXINE SODIUM
     Indication: POST PROCEDURAL HYPOTHYROIDISM
     Dates: start: 2017
  7. ZOCOR [Concomitant]
     Active Substance: SIMVASTATIN
  8. AMLOR [Concomitant]
     Active Substance: AMLODIPINE BESYLATE

REACTIONS (14)
  - Blood glucose increased [None]
  - Glycosylated haemoglobin increased [None]
  - Weight increased [None]
  - Dizziness [None]
  - Crying [None]
  - Blood thyroid stimulating hormone decreased [None]
  - Blood test abnormal [None]
  - Fatigue [None]
  - Creatinine renal clearance decreased [None]
  - Blood creatinine increased [None]
  - Platelet count decreased [None]
  - Thyroglobulin decreased [None]
  - Thyroxine free increased [None]
  - Paraesthesia [None]

NARRATIVE: CASE EVENT DATE: 2017
